FAERS Safety Report 5085643-7 (Version None)
Quarter: 2006Q3

REPORT INFORMATION
  Report Type: 
  Country: None (occurrence: None)
  Receive Date: 20060822
  Receipt Date: 20060726
  Transmission Date: 20061208
  Serious: Yes (Hospitalization)
  Sender: FDA-Public Use
  Company Number: CM-MERCK-0607USA05270

PATIENT
  Age: 57 Year
  Sex: Female

DRUGS (1)
  1. STROMECTOL [Suspect]
     Route: 048
     Dates: start: 20060601, end: 20060601

REACTIONS (6)
  - ANAEMIA [None]
  - ASCITES [None]
  - CARDIAC FAILURE [None]
  - FATIGUE [None]
  - OEDEMA GENITAL [None]
  - OEDEMA PERIPHERAL [None]
